FAERS Safety Report 5389535-5 (Version None)
Quarter: 2007Q3

REPORT INFORMATION
  Report Type: 
  Country: None (occurrence: None)
  Receive Date: 20070717
  Receipt Date: 20070715
  Transmission Date: 20080115
  Serious: Yes (Hospitalization, Other)
  Sender: FDA-Public Use
  Company Number: PH-ASTRAZENECA-2006AP06050

PATIENT
  Age: 27432 Day
  Sex: Female

DRUGS (6)
  1. IRESSA [Suspect]
     Indication: NON-SMALL CELL LUNG CANCER
     Route: 048
     Dates: start: 20060529, end: 20060630
  2. IRESSA [Suspect]
     Route: 048
     Dates: start: 20060710, end: 20060815
  3. IRESSA [Suspect]
     Route: 048
     Dates: start: 20060829, end: 20061218
  4. ITERAX [Concomitant]
     Indication: RASH PRURITIC
     Route: 048
     Dates: start: 20060620
  5. LOSEC [Concomitant]
     Indication: GASTRIC ULCER
     Route: 048
     Dates: start: 20060802
  6. REBAMIPIDE [Concomitant]
     Indication: GASTRIC ULCER
     Route: 048
     Dates: start: 20060802

REACTIONS (1)
  - CELLULITIS [None]
